FAERS Safety Report 12874053 (Version 1)
Quarter: 2016Q4

REPORT INFORMATION
  Report Type: Spontaneous
  Country: JP (occurrence: JP)
  Receive Date: 20161021
  Receipt Date: 20161021
  Transmission Date: 20170207
  Serious: Yes (Other)
  Sender: FDA-Public Use
  Company Number: JP-BAYER-2016-202129

PATIENT
  Sex: Male

DRUGS (1)
  1. GADOVIST [Suspect]
     Active Substance: GADOBUTROL
     Indication: NUCLEAR MAGNETIC RESONANCE IMAGING
     Dosage: 0.1 ML/KG, ONCE
     Route: 042
     Dates: start: 20161014, end: 20161014

REACTIONS (2)
  - Depressed level of consciousness [Recovered/Resolved]
  - Sneezing [None]

NARRATIVE: CASE EVENT DATE: 20161014
